FAERS Safety Report 17143802 (Version 3)
Quarter: 2020Q3

REPORT INFORMATION
  Report Type: Report from Study
  Country: US (occurrence: US)
  Receive Date: 20191211
  Receipt Date: 20200415
  Transmission Date: 20201105
  Serious: Yes (Hospitalization)
  Sender: FDA-Public Use
  Company Number: NVSC2019US062806

PATIENT
  Age: 56 Year
  Sex: Male
  Weight: 88 kg

DRUGS (36)
  1. MESNA. [Suspect]
     Active Substance: MESNA
     Indication: NON-HODGKIN^S LYMPHOMA
     Dosage: UNK
     Route: 065
     Dates: start: 20191031
  2. ACETAMINOPHEN. [Concomitant]
     Active Substance: ACETAMINOPHEN
     Indication: PRODUCT USED FOR UNKNOWN INDICATION
     Dosage: UNK
     Route: 065
     Dates: start: 20191203, end: 20191203
  3. ONDANSETRON [Concomitant]
     Active Substance: ONDANSETRON
     Indication: PROPHYLAXIS OF NAUSEA AND VOMITING
     Dosage: UNK
     Route: 065
     Dates: start: 20191030, end: 20191127
  4. POTASSIUM CHLORIDE. [Concomitant]
     Active Substance: POTASSIUM CHLORIDE
     Indication: GENERAL PHYSICAL CONDITION
     Dosage: UNK
     Route: 065
     Dates: start: 20191207, end: 20191207
  5. POTASSIUM PHOSPHATE [Concomitant]
     Active Substance: POTASSIUM PHOSPHATE
     Indication: GENERAL PHYSICAL CONDITION
     Dosage: 45 MMOL, UNK
     Route: 042
     Dates: start: 20191207, end: 20191207
  6. POTASSIUM PHOSPHATE [Concomitant]
     Active Substance: POTASSIUM PHOSPHATE
     Dosage: 30 MMOL,UNK
     Route: 042
     Dates: start: 20191208, end: 20191208
  7. DRONABINOL. [Concomitant]
     Active Substance: DRONABINOL
     Dosage: UNK
     Route: 065
     Dates: start: 20191204
  8. FLUTICASONE. [Concomitant]
     Active Substance: FLUTICASONE
     Indication: SEASONAL ALLERGY
     Dosage: UNK
     Route: 065
     Dates: start: 20191113
  9. METOPROLOL TARTRATE. [Concomitant]
     Active Substance: METOPROLOL TARTRATE
     Indication: HYPERTENSION
     Dosage: UNK
     Route: 065
     Dates: start: 20180918
  10. MAGNESIUM [Concomitant]
     Active Substance: MAGNESIUM
     Indication: HYPOMAGNESAEMIA
     Dosage: UNK
     Route: 065
     Dates: start: 20191204, end: 20191204
  11. MAGNESIUM SULFATE. [Concomitant]
     Active Substance: MAGNESIUM SULFATE
     Indication: HYPOMAGNESAEMIA
     Dosage: UNK
     Route: 065
     Dates: start: 20191205, end: 20191205
  12. ETOPOSIDE. [Suspect]
     Active Substance: ETOPOSIDE
     Indication: NON-HODGKIN^S LYMPHOMA
     Dosage: UNK
     Route: 042
     Dates: start: 20191031
  13. ASPIRIN. [Concomitant]
     Active Substance: ASPIRIN
     Indication: HYPERTENSION
     Dosage: UNK
     Route: 065
     Dates: start: 20190612
  14. KYMRIAH [Suspect]
     Active Substance: TISAGENLECLEUCEL
     Indication: NON-HODGKIN^S LYMPHOMA
     Dosage: 4,UNK, ONCE/SINGLE
     Route: 042
     Dates: start: 20191203
  15. CARBOPLATIN. [Suspect]
     Active Substance: CARBOPLATIN
     Indication: NON-HODGKIN^S LYMPHOMA
     Dosage: UNK
     Route: 065
     Dates: start: 20191031
  16. ACYCLOVIR. [Concomitant]
     Active Substance: ACYCLOVIR
     Indication: PROPHYLAXIS
     Dosage: UNK
     Route: 065
     Dates: start: 20191030
  17. ATORVASTATIN [Concomitant]
     Active Substance: ATORVASTATIN
     Indication: HYPERTENSION
     Dosage: UNK
     Route: 065
     Dates: start: 20190612
  18. ACETAMINOPHEN. [Concomitant]
     Active Substance: ACETAMINOPHEN
     Dosage: UNK
     Route: 065
     Dates: start: 20191205
  19. DIPHENHYDRAMINE. [Concomitant]
     Active Substance: DIPHENHYDRAMINE
     Indication: PRODUCT USED FOR UNKNOWN INDICATION
     Dosage: UNK
     Route: 065
     Dates: start: 20191203, end: 20191203
  20. ENOXAPARIN [Concomitant]
     Active Substance: ENOXAPARIN
     Indication: PRODUCT USED FOR UNKNOWN INDICATION
     Dosage: UNK
     Route: 065
     Dates: start: 20191205, end: 20191212
  21. POTASSIUM;SODIUM PHOSPHATE [Concomitant]
     Indication: HYPOPHOSPHATAEMIA
     Dosage: UNK
     Route: 065
     Dates: start: 20191205, end: 20191206
  22. POTASSIUM CHLORIDE. [Concomitant]
     Active Substance: POTASSIUM CHLORIDE
     Indication: HYPOKALAEMIA
     Dosage: UNK
     Route: 065
     Dates: start: 20191204, end: 20191207
  23. SODIUM CHLORIDE. [Concomitant]
     Active Substance: SODIUM CHLORIDE
     Indication: PRODUCT USED FOR UNKNOWN INDICATION
     Dosage: UNK
     Route: 065
     Dates: start: 20191203, end: 20191203
  24. ZOLPIDEM [Concomitant]
     Active Substance: ZOLPIDEM TARTRATE
     Indication: INSOMNIA
     Dosage: UNK
     Route: 065
     Dates: start: 20180713
  25. RITUXIMAB. [Suspect]
     Active Substance: RITUXIMAB
     Indication: NON-HODGKIN^S LYMPHOMA
     Dosage: UNK
     Route: 065
     Dates: start: 20191030
  26. CHLORHEXIDINE GLUCONATE. [Concomitant]
     Active Substance: CHLORHEXIDINE GLUCONATE
     Indication: PRODUCT USED FOR UNKNOWN INDICATION
     Dosage: 4 %, UNK
     Route: 061
     Dates: start: 20191204
  27. MAGNESIUM [Concomitant]
     Active Substance: MAGNESIUM
     Dosage: UNK
     Route: 065
     Dates: start: 20191206, end: 20191206
  28. PROCHLORPERAZINE. [Concomitant]
     Active Substance: PROCHLORPERAZINE
     Indication: PROPHYLAXIS OF NAUSEA AND VOMITING
     Dosage: UNK
     Route: 065
     Dates: start: 20191030
  29. IFOSFAMIDE. [Suspect]
     Active Substance: IFOSFAMIDE
     Indication: NON-HODGKIN^S LYMPHOMA
     Dosage: UNK
     Route: 041
     Dates: start: 20191031
  30. POTASSIUM CHLORIDE. [Concomitant]
     Active Substance: POTASSIUM CHLORIDE
     Dosage: UNK
     Route: 065
     Dates: start: 20191208, end: 20191208
  31. DRONABINOL. [Concomitant]
     Active Substance: DRONABINOL
     Indication: PROPHYLAXIS OF NAUSEA AND VOMITING
     Dosage: UNK
     Route: 065
     Dates: start: 20191101
  32. MAGNESIUM SULFATE. [Concomitant]
     Active Substance: MAGNESIUM SULFATE
     Indication: GENERAL PHYSICAL CONDITION
     Dosage: UNK
     Route: 065
     Dates: start: 20191207, end: 20191207
  33. MAGNESIUM SULFATE. [Concomitant]
     Active Substance: MAGNESIUM SULFATE
     Dosage: UNK
     Route: 065
     Dates: start: 20191208, end: 20191208
  34. POLYCARBOPHIL CALCIUM [Concomitant]
     Active Substance: CALCIUM POLYCARBOPHIL
     Indication: GENERAL PHYSICAL CONDITION
     Dosage: UNK
     Route: 065
     Dates: start: 20180718, end: 20191126
  35. PHYTONADIONE. [Concomitant]
     Active Substance: PHYTONADIONE
     Indication: INTERNATIONAL NORMALISED RATIO INCREASED
     Dosage: UNK
     Route: 065
     Dates: start: 20191206, end: 20191208
  36. VALSARTAN. [Concomitant]
     Active Substance: VALSARTAN
     Indication: HYPERTENSION
     Dosage: UNK
     Route: 065
     Dates: start: 20190612

REACTIONS (1)
  - Cytokine release syndrome [Recovered/Resolved]

NARRATIVE: CASE EVENT DATE: 20191203
